FAERS Safety Report 7494933-X (Version None)
Quarter: 2011Q2

REPORT INFORMATION
  Report Type: 
  Country: None (occurrence: None)
  Receive Date: 20110520
  Receipt Date: 20110509
  Transmission Date: 20111010
  Serious: Yes (Disabling, Other)
  Sender: FDA-Public Use
  Company Number: US-UCBSA-032418

PATIENT
  Age: 49 Year
  Sex: Female
  Weight: 71 kg

DRUGS (7)
  1. TEGRETOL-XR [Concomitant]
     Indication: EPILEPSY
     Route: 048
     Dates: start: 19950303
  2. ATIVAN [Concomitant]
     Indication: INSOMNIA
     Route: 048
     Dates: start: 19950201
  3. EFFEXOR XR [Concomitant]
     Indication: EPILEPSY
     Route: 048
     Dates: start: 20090301, end: 20091119
  4. CLONAZEPAM [Concomitant]
     Indication: EPILEPSY
     Route: 048
     Dates: start: 19950215
  5. ATIVAN [Concomitant]
     Indication: EPILEPSY
     Route: 048
     Dates: start: 19950201
  6. REMERON [Concomitant]
  7. KEPPRA [Suspect]
     Indication: EPILEPSY
     Dates: start: 20090501

REACTIONS (4)
  - DEPRESSED MOOD [None]
  - MAJOR DEPRESSION [None]
  - HYPOTHYROIDISM [None]
  - DYSTHYMIC DISORDER [None]
